FAERS Safety Report 11004668 (Version 2)
Quarter: 2015Q2

REPORT INFORMATION
  Report Type: Spontaneous
  Country: JP (occurrence: JP)
  Receive Date: 20150409
  Receipt Date: 20150428
  Transmission Date: 20150821
  Serious: Yes (Other)
  Sender: FDA-Public Use
  Company Number: JP-ASTRAZENECA-2015SE31985

PATIENT
  Age: 64 Year
  Sex: Male

DRUGS (2)
  1. XYLOCAINE [Suspect]
     Active Substance: LIDOCAINE HYDROCHLORIDE
     Dosage: DOSE UNKNOWN
     Route: 065
  2. MANY DRUGS [Concomitant]

REACTIONS (1)
  - Shock [Recovering/Resolving]
